FAERS Safety Report 8551815-X (Version None)
Quarter: 2012Q3

REPORT INFORMATION
  Report Type: 
  Country: None (occurrence: None)
  Receive Date: 20120730
  Receipt Date: 20120720
  Transmission Date: 20120928
  Serious: Yes (Death)
  Sender: FDA-Public Use
  Company Number: US-BAXTER-2012BAX012582

PATIENT
  Sex: Male

DRUGS (1)
  1. SODIUM CHLORIDE INJ [Suspect]
     Route: 065

REACTIONS (1)
  - CYSTIC FIBROSIS [None]
